FAERS Safety Report 7344214-X (Version None)
Quarter: 2011Q1

REPORT INFORMATION
  Report Type: 
  Country: None (occurrence: None)
  Receive Date: 20110310
  Receipt Date: 20100824
  Transmission Date: 20110831
  Serious: No
  Sender: FDA-Public Use
  Company Number: A0877418A

PATIENT
  Age: 39 Year
  Sex: Female

DRUGS (2)
  1. DIAZEPAM [Concomitant]
  2. NICORETTE (MINT) [Suspect]
     Dates: start: 20100822

REACTIONS (8)
  - DRUG ADMINISTRATION ERROR [None]
  - CHEST DISCOMFORT [None]
  - FEELING ABNORMAL [None]
  - HYPOAESTHESIA [None]
  - ANXIETY [None]
  - CONDITION AGGRAVATED [None]
  - DIZZINESS [None]
  - ABDOMINAL DISCOMFORT [None]
